FAERS Safety Report 9632562 (Version 3)
Quarter: 2013Q4

REPORT INFORMATION
  Report Type: Spontaneous
  Country: IT (occurrence: IT)
  Receive Date: 20131018
  Receipt Date: 20131226
  Transmission Date: 20140711
  Serious: Yes (Hospitalization)
  Sender: FDA-Public Use
  Company Number: IT-BAYER-2013-123362

PATIENT
  Age: 83 Year
  Sex: Female

DRUGS (1)
  1. CARDIOASPIRIN [Suspect]
     Indication: PROPHYLAXIS
     Dosage: DAILY DOSE 100 MG
     Route: 048

REACTIONS (1)
  - Traumatic intracranial haemorrhage [Unknown]
